FAERS Safety Report 9469104 (Version 1)
Quarter: 2013Q3

REPORT INFORMATION
  Report Type: Spontaneous
  Country: GR (occurrence: GR)
  Receive Date: 20130821
  Receipt Date: 20130821
  Transmission Date: 20140515
  Serious: Yes (Other)
  Sender: FDA-Public Use
  Company Number: GR-PFIZER INC-2013239781

PATIENT
  Age: 43 Year
  Sex: Female

DRUGS (4)
  1. ZOLOFT [Suspect]
     Indication: STRESS
     Dosage: 100 MG, 1X/DAY
     Dates: start: 201111
  2. XANAX [Suspect]
     Indication: STRESS
     Dosage: 0.25 MG, 1X/DAY
     Dates: start: 201111
  3. LYRICA [Suspect]
     Indication: STRESS
     Dosage: 75 MG, 1X/DAY
     Dates: start: 201209, end: 2012
  4. ZANERIL [Concomitant]
     Indication: HYPERTENSION
     Dosage: 10/10 MG, UNK

REACTIONS (7)
  - Coeliac disease [Unknown]
  - Hyperthyroidism [Unknown]
  - Constipation [Unknown]
  - Alopecia [Unknown]
  - Insomnia [Unknown]
  - Off label use [Unknown]
  - Incorrect drug administration duration [Unknown]
